FAERS Safety Report 6396373-3 (Version None)
Quarter: 2009Q4

REPORT INFORMATION
  Report Type: 
  Country: None (occurrence: None)
  Receive Date: 20091012
  Receipt Date: 20091002
  Transmission Date: 20100525
  Serious: No
  Sender: FDA-Public Use
  Company Number: US-JNJFOC-20091001697

PATIENT
  Sex: Male
  Weight: 58.97 kg

DRUGS (10)
  1. DURAGESIC-100 [Suspect]
     Indication: NEURALGIA
     Dosage: TWO 75UG/HR PATCHES
     Route: 062
  2. NEURONTIN [Concomitant]
     Indication: NEURALGIA
     Route: 048
  3. EFFEXOR [Concomitant]
     Indication: DEPRESSION
     Route: 048
  4. CLONAZEPAM [Concomitant]
     Indication: ANXIETY
     Route: 048
  5. GLUCOPHAGE [Concomitant]
     Indication: DIABETES MELLITUS
     Route: 048
  6. GLUCOTROL [Concomitant]
     Indication: DIABETES MELLITUS
     Route: 048
  7. VYTORIN [Concomitant]
     Indication: BLOOD CHOLESTEROL
     Route: 048
  8. FUROSEMIDE [Concomitant]
     Indication: URINARY TRACT DISORDER
     Route: 048
  9. ALTACE [Concomitant]
     Indication: HYPERTENSION
     Route: 048
  10. LUNESTA [Concomitant]
     Indication: SLEEP DISORDER
     Route: 048

REACTIONS (2)
  - INAPPROPRIATE SCHEDULE OF DRUG ADMINISTRATION [None]
  - THERAPEUTIC RESPONSE DECREASED [None]
